FAERS Safety Report 9351601 (Version 1)
Quarter: 2013Q2

REPORT INFORMATION
  Report Type: Spontaneous
  Country: NZ (occurrence: NZ)
  Receive Date: 20130617
  Receipt Date: 20130617
  Transmission Date: 20140414
  Serious: Yes (Life-Threatening, Other)
  Sender: FDA-Public Use
  Company Number: NZ-PFIZER INC-2013178345

PATIENT
  Age: 23 Year
  Sex: Female
  Weight: 65 kg

DRUGS (3)
  1. CHAMPIX [Suspect]
     Indication: SMOKING CESSATION THERAPY
     Dosage: 1 MG, 2X/DAY
     Route: 048
     Dates: start: 20120920, end: 20120928
  2. CHAMPIX [Interacting]
     Indication: TOBACCO ABUSE
  3. TRAMADOL [Concomitant]
     Indication: PAIN
     Dosage: 50 MG, AS NEEDED
     Route: 048

REACTIONS (3)
  - Suicidal ideation [Recovering/Resolving]
  - Alcohol interaction [Not Recovered/Not Resolved]
  - Suicide attempt [Recovering/Resolving]
